FAERS Safety Report 5063106-2 (Version None)
Quarter: 2006Q3

REPORT INFORMATION
  Report Type: 
  Country: None (occurrence: None)
  Receive Date: 20060725
  Receipt Date: 20060725
  Transmission Date: 20061208
  Serious: Yes (Hospitalization)
  Sender: FDA-Public Use
  Company Number: None

PATIENT
  Sex: Female
  Weight: 95.709 kg

DRUGS (2)
  1. AVASTIN [Suspect]
     Indication: METASTATIC MALIGNANT MELANOMA
     Dosage: 960 MG EVERY 2 WEEKS IV
     Route: 042
     Dates: start: 20060329, end: 20060703
  2. TARCEVA [Suspect]
     Indication: METASTATIC MALIGNANT MELANOMA
     Dosage: 150 MG QD PO
     Route: 048
     Dates: start: 20060329, end: 20060703

REACTIONS (12)
  - ABDOMINAL PAIN UPPER [None]
  - ASTHENIA [None]
  - CHROMATURIA [None]
  - GALLBLADDER DISORDER [None]
  - HEPATOMEGALY [None]
  - HYPERHIDROSIS [None]
  - HYPOTENSION [None]
  - METASTASES TO LIVER [None]
  - NAUSEA [None]
  - SPLENOMEGALY [None]
  - URINE OUTPUT DECREASED [None]
  - VOMITING [None]
